FAERS Safety Report 18366379 (Version 1)
Quarter: 2020Q4

REPORT INFORMATION
  Report Type: Spontaneous
  Country: US (occurrence: US)
  Receive Date: 20201009
  Receipt Date: 20201009
  Transmission Date: 20210114
  Serious: Yes (Death, Other)
  Sender: FDA-Public Use
  Company Number: US-PFIZER INC-2020387339

PATIENT
  Sex: Male

DRUGS (14)
  1. HYDROCODONE [Suspect]
     Active Substance: HYDROCODONE
     Dosage: UNK
  2. TRAMADOL. [Suspect]
     Active Substance: TRAMADOL
     Dosage: UNK
  3. ACETAMINOPHEN. [Suspect]
     Active Substance: ACETAMINOPHEN
     Dosage: UNK
  4. VICODIN [Suspect]
     Active Substance: ACETAMINOPHEN\HYDROCODONE BITARTRATE
     Dosage: UNK
  5. TYLENOL [Suspect]
     Active Substance: ACETAMINOPHEN
     Dosage: UNK
  6. METHADONE [Suspect]
     Active Substance: METHADONE HYDROCHLORIDE
     Dosage: UNK
  7. NAPROXEN. [Suspect]
     Active Substance: NAPROXEN
     Dosage: UNK
  8. OXYCONTIN [Suspect]
     Active Substance: OXYCODONE HYDROCHLORIDE
     Dosage: UNK
  9. LYRICA [Suspect]
     Active Substance: PREGABALIN
  10. OXYCODONE [Suspect]
     Active Substance: OXYCODONE
     Dosage: UNK
  11. ADVIL [Suspect]
     Active Substance: IBUPROFEN
     Dosage: UNK
  12. PERCOCET [Suspect]
     Active Substance: ACETAMINOPHEN\OXYCODONE HYDROCHLORIDE
     Dosage: UNK
  13. ROXICET [Suspect]
     Active Substance: ACETAMINOPHEN\OXYCODONE HYDROCHLORIDE
     Dosage: UNK
  14. ULTRAME [Suspect]
     Active Substance: TRAMADOL HYDROCHLORIDE

REACTIONS (3)
  - Drug dependence [Unknown]
  - Overdose [Fatal]
  - Completed suicide [Fatal]
